FAERS Safety Report 9070692 (Version 3)
Quarter: 2013Q1

REPORT INFORMATION
  Report Type: Spontaneous
  Country: KR (occurrence: KR)
  Receive Date: 20130206
  Receipt Date: 20130318
  Transmission Date: 20140127
  Serious: Yes (Other)
  Sender: FDA-Public Use
  Company Number: KR-B.I. PHARMACEUTICALS,INC./RIDGEFIELD-2013-BI-03166YA

PATIENT
  Age: 77 Year
  Sex: Female

DRUGS (6)
  1. TAMSULOSINA [Suspect]
     Indication: POLLAKIURIA
     Route: 048
  2. VESICARE (SOLIFENACIN) [Suspect]
     Indication: POLLAKIURIA
     Route: 048
  3. ANTIHYPERTENSIVES [Concomitant]
  4. VALIUM (DIAZEPAM) [Concomitant]
  5. ASTRIX (ACETYLSALICYLIC ACID) [Concomitant]
  6. MEDICINE FOR CHOLESTEROL [Concomitant]
     Route: 048

REACTIONS (2)
  - Blood pressure decreased [Recovered/Resolved]
  - Constipation [Not Recovered/Not Resolved]
